FAERS Safety Report 6527979-6 (Version None)
Quarter: 2010Q1

REPORT INFORMATION
  Report Type: 
  Country: None (occurrence: None)
  Receive Date: 20100106
  Receipt Date: 20091228
  Transmission Date: 20100710
  Serious: Yes (Death)
  Sender: FDA-Public Use
  Company Number: US-SANOFI-AVENTIS-2009SA011391

PATIENT

DRUGS (1)
  1. LANTUS [Suspect]
     Route: 058

REACTIONS (1)
  - DEATH [None]
